FAERS Safety Report 20141148 (Version 2)
Quarter: 2022Q1

REPORT INFORMATION
  Report Type: Spontaneous
  Country: US (occurrence: US)
  Receive Date: 20211202
  Receipt Date: 20220217
  Transmission Date: 20220423
  Serious: Yes (Other)
  Sender: FDA-Public Use
  Company Number: US-PFIZER INC-202101619912

PATIENT
  Age: 30 Year
  Sex: Male

DRUGS (3)
  1. ADALIMUMAB [Suspect]
     Active Substance: ADALIMUMAB
     Indication: Psoriatic arthropathy
     Dosage: UNK
  2. DOXYCYCLINE [Concomitant]
     Active Substance: DOXYCYCLINE
     Indication: Herpes zoster infection neurological
     Dosage: 200 MG, 2X/DAY
  3. VALACYCLOVIR [Concomitant]
     Active Substance: VALACYCLOVIR HYDROCHLORIDE
     Indication: Herpes zoster infection neurological
     Dosage: 1 G, 3X/DAY

REACTIONS (3)
  - Sarcoidosis [Recovering/Resolving]
  - Choroiditis [Recovering/Resolving]
  - Pulmonary sarcoidosis [Recovering/Resolving]
